FAERS Safety Report 5503722-4 (Version None)
Quarter: 2007Q4

REPORT INFORMATION
  Report Type: 
  Country: None (occurrence: None)
  Receive Date: 20071101
  Receipt Date: 20071022
  Transmission Date: 20080405
  Serious: Yes (Hospitalization)
  Sender: FDA-Public Use
  Company Number: US-JNJFOC-20070803995

PATIENT
  Sex: Male

DRUGS (5)
  1. INVEGA [Suspect]
     Indication: AUTISM
     Route: 048
  2. INVEGA [Suspect]
     Indication: INTERMITTENT EXPLOSIVE DISORDER
     Route: 048
  3. CLOMIPRAMINE HCL [Concomitant]
     Indication: OBSESSIVE-COMPULSIVE DISORDER
  4. PAXIL [Concomitant]
     Indication: ANXIETY
  5. CONCERTA [Concomitant]
     Indication: ATTENTION DEFICIT/HYPERACTIVITY DISORDER

REACTIONS (2)
  - CONSTIPATION [None]
  - IRRITABILITY [None]
